FAERS Safety Report 5279928-9 (Version None)
Quarter: 2007Q1

REPORT INFORMATION
  Report Type: 
  Country: None (occurrence: None)
  Receive Date: 20070327
  Receipt Date: 20070327
  Transmission Date: 20070707
  Serious: Yes (Death)
  Sender: FDA-Public Use
  Company Number: None

PATIENT
  Age: 20 Year
  Sex: Female

DRUGS (1)
  1. COMPAZINE [Suspect]
     Indication: NAUSEA
     Dosage: 10MG TID PO
     Route: 048
     Dates: start: 20070313, end: 20070314

REACTIONS (5)
  - ANOXIC ENCEPHALOPATHY [None]
  - DYSPNOEA [None]
  - MUSCLE TIGHTNESS [None]
  - PULSE ABSENT [None]
  - RESPIRATORY ARREST [None]
